FAERS Safety Report 20917276 (Version 1)
Quarter: 2022Q2

REPORT INFORMATION
  Report Type: Spontaneous
  Country: GB (occurrence: GB)
  Receive Date: 20220606
  Receipt Date: 20220606
  Transmission Date: 20220721
  Serious: Yes (Hospitalization)
  Sender: FDA-Public Use
  Company Number: GB-MHRA-MIDB-4c9d768e-687f-4adf-9663-055178ff68b6

PATIENT
  Age: 77 Year
  Sex: Male

DRUGS (15)
  1. BISOPROLOL [Suspect]
     Active Substance: BISOPROLOL
     Indication: Product used for unknown indication
     Dosage: 2.5 MILLIGRAM, ONCE A DAY
     Route: 065
  2. DOXAZOSIN [Suspect]
     Active Substance: DOXAZOSIN MESYLATE
     Indication: Hypertension
     Dosage: 8 MILLIGRAM, TWO TIMES A DAY (TAKE IN THE MORNING AND AT NIGHT)
     Route: 065
  3. IRBESARTAN [Suspect]
     Active Substance: IRBESARTAN
     Indication: Hypertension
     Dosage: 300 MILLIGRAM, ONCE A DAY
     Route: 065
  4. ATORVASTATIN [Concomitant]
     Active Substance: ATORVASTATIN
     Indication: Hyperlipidaemia
     Dosage: 40 MILLIGRAM, ONCE A DAY (TAKE AT NIGHT)
     Route: 065
  5. FERROUS FUMARATE [Concomitant]
     Active Substance: FERROUS FUMARATE
     Indication: Product used for unknown indication
     Dosage: 210 MILLIGRAM, 3 TIMES A DAY
     Route: 065
  6. Ultrabase [Concomitant]
     Indication: Product used for unknown indication
     Dosage: 1 MILLILITER
     Route: 065
  7. IBUPROFEN [Concomitant]
     Active Substance: IBUPROFEN
     Indication: Product used for unknown indication
     Dosage: 1 DOSAGE FORM, 3 TIMES A DAY
     Route: 065
  8. LATANOPROST [Concomitant]
     Active Substance: LATANOPROST
     Indication: Glaucoma
     Dosage: 1 DOSAGE FORM, ONCE A DAY (50 MICROGRAM/ML, USE IN THE AFFECTED EYE IN THE MORNING)
     Route: 065
  9. METFORMIN [Concomitant]
     Active Substance: METFORMIN HYDROCHLORIDE
     Indication: Type 2 diabetes mellitus
     Dosage: 1 GRAM, TWO TIMES A DAY
     Route: 065
  10. POLYVINYL ALCOHOL [Concomitant]
     Active Substance: POLYVINYL ALCOHOL
     Indication: Product used for unknown indication
     Dosage: 1 DOSAGE FORM, 3 TIMES A DAY
     Route: 065
  11. SITAGLIPTIN [Concomitant]
     Active Substance: SITAGLIPTIN
     Indication: Type 2 diabetes mellitus
     Dosage: 100 MILLIGRAM, ONCE A DAY
     Route: 065
  12. SPIRONOLACTONE [Concomitant]
     Active Substance: SPIRONOLACTONE
     Indication: Product used for unknown indication
     Dosage: 25 MILLIGRAM, ONCE A DAY
     Route: 065
  13. TIMOLOL [Concomitant]
     Active Substance: TIMOLOL
     Indication: Glaucoma
     Dosage: UNK UNK, ONCE A DAY (50 MICROGRAM/ML, USE IN THE AFFECTED EYE IN THE MORNING)
     Route: 065
  14. WARFARIN [Concomitant]
     Active Substance: WARFARIN
     Indication: Atrial fibrillation
     Dosage: 1 MILLIGRAM
     Route: 065
  15. WARFARIN [Concomitant]
     Active Substance: WARFARIN
     Dosage: 3 MILLIGRAM
     Route: 065

REACTIONS (1)
  - Fall [Recovering/Resolving]
